FAERS Safety Report 25016922 (Version 3)
Quarter: 2025Q2

REPORT INFORMATION
  Report Type: Report from Study
  Country: JP (occurrence: JP)
  Receive Date: 20250227
  Receipt Date: 20250407
  Transmission Date: 20250717
  Serious: Yes (Other)
  Sender: CSL BEHRING
  Company Number: JP-BEH-2025196594

PATIENT
  Age: 21 Year
  Sex: Male
  Weight: 62 kg

DRUGS (10)
  1. BERINERT [Suspect]
     Active Substance: HUMAN C1-ESTERASE INHIBITOR
     Indication: Hereditary angioedema with normal C1 esterase inhibitor
     Dosage: 7.5 ML, BIW
     Route: 058
     Dates: start: 20230505, end: 20230718
  2. BERINERT [Suspect]
     Active Substance: HUMAN C1-ESTERASE INHIBITOR
     Indication: Prophylaxis
  3. BERINERT [Suspect]
     Active Substance: HUMAN C1-ESTERASE INHIBITOR
     Indication: Hereditary angioedema
  4. ORLADEYO [Suspect]
     Active Substance: BEROTRALSTAT HYDROCHLORIDE
     Indication: Prophylaxis
     Route: 048
  5. ORLADEYO [Suspect]
     Active Substance: BEROTRALSTAT HYDROCHLORIDE
     Indication: Hereditary angioedema
  6. TAKHZYRO [Concomitant]
     Active Substance: LANADELUMAB-FLYO
     Indication: Prophylaxis
     Route: 058
     Dates: start: 20230413, end: 20230413
  7. TAKHZYRO [Concomitant]
     Active Substance: LANADELUMAB-FLYO
     Indication: Hereditary angioedema
     Route: 058
     Dates: start: 20230427, end: 20230427
  8. TAKHZYRO [Concomitant]
     Active Substance: LANADELUMAB-FLYO
     Route: 058
     Dates: start: 20230718, end: 20230718
  9. TAKHZYRO [Concomitant]
     Active Substance: LANADELUMAB-FLYO
     Route: 058
     Dates: start: 20230801, end: 20230801
  10. TAKHZYRO [Concomitant]
     Active Substance: LANADELUMAB-FLYO
     Route: 058
     Dates: start: 20230817, end: 20230817

REACTIONS (12)
  - Hereditary angioedema [Recovered/Resolved]
  - Malaise [Recovered/Resolved]
  - Abdominal distension [Recovered/Resolved]
  - Swelling face [Recovered/Resolved]
  - Pharyngeal swelling [Recovered/Resolved]
  - Generalised oedema [Recovered/Resolved]
  - Abdominal pain [Recovered/Resolved]
  - Movement disorder [Recovered/Resolved]
  - Hereditary angioedema [Recovering/Resolving]
  - Hereditary angioedema [Recovering/Resolving]
  - Hereditary angioedema [Recovered/Resolved]
  - Abdominal pain [Unknown]

NARRATIVE: CASE EVENT DATE: 20230515
